FAERS Safety Report 8154054-X (Version None)
Quarter: 2012Q1

REPORT INFORMATION
  Report Type: 
  Country: None (occurrence: None)
  Receive Date: 20120221
  Receipt Date: 20120209
  Transmission Date: 20120608
  Serious: Yes (Hospitalization)
  Sender: FDA-Public Use
  Company Number: HK-BRISTOL-MYERS SQUIBB COMPANY-16395204

PATIENT
  Age: 67 Year
  Sex: Male

DRUGS (7)
  1. ACETAMINOPHEN [Concomitant]
     Dates: start: 20120118, end: 20120124
  2. BLINDED: SAXAGLIPTIN [Suspect]
     Indication: TYPE 2 DIABETES MELLITUS
     Dates: start: 20110211, end: 20110228
  3. METFORMIN HCL [Suspect]
     Indication: TYPE 2 DIABETES MELLITUS
  4. PLACEBO [Suspect]
     Indication: TYPE 2 DIABETES MELLITUS
     Dates: start: 20110211, end: 20110228
  5. HUMULIN N [Suspect]
     Indication: TYPE 2 DIABETES MELLITUS
     Dosage: 30IU:UNK-4JAN2012 40IU/U:5JAN12-4FEB2012 36IU/U:5FEB2012-ONG
  6. METOPROLOL TARTRATE [Suspect]
  7. GLYBURIDE [Suspect]
     Indication: TYPE 2 DIABETES MELLITUS

REACTIONS (2)
  - SYNCOPE [None]
  - MEDICAL DEVICE IMPLANTATION [None]
